FAERS Safety Report 12535246 (Version 3)
Quarter: 2016Q3

REPORT INFORMATION
  Report Type: Spontaneous
  Country: US (occurrence: US)
  Receive Date: 20160707
  Receipt Date: 20160808
  Transmission Date: 20161109
  Serious: No
  Sender: FDA-Public Use
  Company Number: US-BEH-2015056376

PATIENT
  Sex: Female
  Weight: 82 kg

DRUGS (15)
  1. LIDOCAINE/PRILOCAINE [Concomitant]
     Active Substance: LIDOCAINE\PRILOCAINE
  2. BUDESONIDE. [Concomitant]
     Active Substance: BUDESONIDE
  3. FUROSEMIDE. [Concomitant]
     Active Substance: FUROSEMIDE
  4. FOLIC ACID. [Concomitant]
     Active Substance: FOLIC ACID
  5. HIZENTRA [Suspect]
     Active Substance: HUMAN IMMUNOGLOBULIN G
     Indication: IMMUNODEFICIENCY COMMON VARIABLE
     Route: 058
  6. DONEPEZIL. [Concomitant]
     Active Substance: DONEPEZIL
  7. PREDNISONE. [Concomitant]
     Active Substance: PREDNISONE
  8. DIPHENHYDRAMINE. [Concomitant]
     Active Substance: DIPHENHYDRAMINE
  9. ALEVE [Concomitant]
     Active Substance: NAPROXEN SODIUM
  10. TYLENOL [Concomitant]
     Active Substance: ACETAMINOPHEN
  11. EPIPEN [Concomitant]
     Active Substance: EPINEPHRINE
  12. L-M-X [Concomitant]
  13. CELEXA [Concomitant]
     Active Substance: CITALOPRAM HYDROBROMIDE
  14. METHOTREXATE. [Concomitant]
     Active Substance: METHOTREXATE
  15. DOCUSATE SODIUM. [Concomitant]
     Active Substance: DOCUSATE SODIUM

REACTIONS (1)
  - Nasopharyngitis [Unknown]
